FAERS Safety Report 10170794 (Version 3)
Quarter: 2014Q2

REPORT INFORMATION
  Report Type: Spontaneous
  Country: JP (occurrence: JP)
  Receive Date: 20140514
  Receipt Date: 20140604
  Transmission Date: 20141212
  Serious: No
  Sender: FDA-Public Use
  Company Number: JP-PFIZER INC-2014127804

PATIENT
  Age: 62 Year
  Sex: Male

DRUGS (2)
  1. SEIBULE [Suspect]
     Indication: TYPE 2 DIABETES MELLITUS
     Dosage: 50 MG, 3X/DAY
     Route: 048
     Dates: start: 2007
  2. NESINA [Concomitant]
     Dosage: UNK

REACTIONS (1)
  - Dermatitis exfoliative [Recovering/Resolving]
